FAERS Safety Report 4304395-9 (Version None)
Quarter: 2004Q1

REPORT INFORMATION
  Report Type: 
  Country: None (occurrence: None)
  Receive Date: 20040224
  Receipt Date: 20040213
  Transmission Date: 20041129
  Serious: Yes (Life-Threatening, Hospitalization, Other)
  Sender: FDA-Public Use
  Company Number: US-JNJFOC-20031003293

PATIENT
  Age: 63 Year
  Sex: Female
  Weight: 56.6996 kg

DRUGS (12)
  1. REMICADE [Suspect]
     Indication: RHEUMATOID ARTHRITIS
     Dosage: 200 MG, 1 IN 1 TOTAL, INTRAVENOUS
     Route: 042
     Dates: start: 20000901
  2. REMICADE [Suspect]
     Indication: RHEUMATOID ARTHRITIS
     Dosage: 200 MG, 1 IN 1 TOTAL, INTRAVENOUS
     Route: 042
     Dates: start: 20001201
  3. REMICADE [Suspect]
     Indication: RHEUMATOID ARTHRITIS
     Dosage: 200 MG, 1 IN 1 TOTAL, INTRAVENOUS
     Route: 042
     Dates: start: 20030601
  4. REMICADE [Suspect]
     Indication: RHEUMATOID ARTHRITIS
     Dosage: 200 MG, 1 IN 1 TOTAL, INTRAVENOUS
     Route: 042
     Dates: start: 20031002
  5. METHOTREXATE [Suspect]
     Indication: RHEUMATOID ARTHRITIS
  6. PROZAC [Concomitant]
  7. FOLIC ACID [Concomitant]
  8. PREM-PRO (PREMARIN PLUS) [Concomitant]
  9. FIOROCET (AXOTAL (OLD FORM)) [Concomitant]
  10. FLONASE [Concomitant]
  11. FOSAMAX [Concomitant]
  12. AMBIEN [Concomitant]

REACTIONS (4)
  - LYMPHADENOPATHY [None]
  - LYMPHOMA [None]
  - MALIGNANT PLEURAL EFFUSION [None]
  - NECK PAIN [None]
